FAERS Safety Report 5995822-X (Version None)
Quarter: 2008Q4

REPORT INFORMATION
  Report Type: 
  Country: None (occurrence: None)
  Receive Date: 20081212
  Receipt Date: 20081201
  Transmission Date: 20090506
  Serious: Yes (Other)
  Sender: FDA-Public Use
  Company Number: BR-PFIZER INC-2008151182

PATIENT

DRUGS (5)
  1. ALPRAZOLAM [Suspect]
     Indication: ANXIETY
     Dosage: 0.5 MG, 2X/DAY
     Route: 048
     Dates: start: 20000101
  2. EUTHYROX [Concomitant]
     Dosage: UNK
     Route: 065
  3. PROPRANOLOL [Concomitant]
     Dosage: UNK
     Route: 065
  4. CHLOROTHIAZIDE [Concomitant]
     Dosage: UNK
     Route: 065
  5. FLUOXETINE HCL [Concomitant]
     Route: 065

REACTIONS (6)
  - ANXIETY [None]
  - CYSTITIS [None]
  - HEPATIC STEATOSIS [None]
  - NERVOUSNESS [None]
  - PANCREAS LIPOMATOSIS [None]
  - WEIGHT INCREASED [None]
